FAERS Safety Report 12599983 (Version 2)
Quarter: 2016Q3

REPORT INFORMATION
  Report Type: Spontaneous
  Country: US (occurrence: US)
  Receive Date: 20160727
  Receipt Date: 20160819
  Transmission Date: 20161109
  Serious: No
  Sender: FDA-Public Use
  Company Number: US-UCBSA-2015025846

PATIENT
  Age: 56 Year
  Sex: Female
  Weight: 48.96 kg

DRUGS (4)
  1. ESTRADIOL. [Concomitant]
     Active Substance: ESTRADIOL
     Indication: MENOPAUSE
     Dosage: UNK, AS NEEDED (PRN)
  2. POLYETHYLENE GLYCOL 3350 PRESCRIPTION [Suspect]
     Active Substance: POLYETHYLENE GLYCOL 3350
     Indication: PRODUCT USED FOR UNKNOWN INDICATION
     Dosage: 1/4 BOTTLE
     Dates: start: 20150730, end: 20150730
  3. POLYETHYLENE GLYCOL 3350 PRESCRIPTION [Suspect]
     Active Substance: POLYETHYLENE GLYCOL 3350
     Dosage: 20 OUNCES
     Dates: start: 20150731, end: 2015
  4. ARMOUR THYROID [Concomitant]
     Active Substance: THYROID, PORCINE
     Indication: HYPOTHYROIDISM
     Dosage: 30 MG QD

REACTIONS (9)
  - Blood pressure increased [Recovered/Resolved]
  - Migraine [Recovered/Resolved]
  - Pyrexia [Not Recovered/Not Resolved]
  - Vomiting [Recovered/Resolved]
  - Asthenia [Recovered/Resolved]
  - Abdominal distension [Not Recovered/Not Resolved]
  - Dizziness [Recovered/Resolved]
  - Dyspnoea [Recovered/Resolved]
  - Weight decreased [Not Recovered/Not Resolved]

NARRATIVE: CASE EVENT DATE: 2015
